FAERS Safety Report 8517885-X (Version None)
Quarter: 2012Q3

REPORT INFORMATION
  Report Type: 
  Country: None (occurrence: None)
  Receive Date: 20120718
  Receipt Date: 20110629
  Transmission Date: 20120928
  Serious: No
  Sender: FDA-Public Use
  Company Number: US-BRISTOL-MYERS SQUIBB COMPANY-15864119

PATIENT
  Sex: Female

DRUGS (3)
  1. TOPROL-XL [Suspect]
  2. NORVASC [Suspect]
  3. COUMADIN [Suspect]

REACTIONS (1)
  - BLOOD PRESSURE INADEQUATELY CONTROLLED [None]
